FAERS Safety Report 8963687 (Version 1)
Quarter: 2012Q4

REPORT INFORMATION
  Report Type: Report from Study
  Country: ZA (occurrence: ZA)
  Receive Date: 20121214
  Receipt Date: 20121214
  Transmission Date: 20130627
  Serious: Yes (Life-Threatening, Hospitalization)
  Sender: FDA-Public Use
  Company Number: ZA-SANOFI-AVENTIS-2012SA090258

PATIENT
  Age: 36 Year
  Sex: Female
  Weight: 114.9 kg

DRUGS (11)
  1. DOCETAXEL [Suspect]
     Indication: BREAST CANCER
     Route: 041
     Dates: start: 20110707, end: 20110707
  2. DOCETAXEL [Suspect]
     Indication: BREAST CANCER
     Route: 041
     Dates: start: 20110802, end: 20110802
  3. DOCETAXEL [Suspect]
     Indication: BREAST CANCER
     Route: 041
     Dates: start: 20111004, end: 20111004
  4. BLINDED THERAPY [Suspect]
     Indication: BREAST CANCER
     Dates: start: 20110707, end: 20110707
  5. PANADO [Concomitant]
     Indication: BREAST PAIN
  6. BETANOID [Concomitant]
     Dates: start: 20110706, end: 20110824
  7. ONDANSETRON [Concomitant]
     Dates: start: 20110707, end: 20110707
  8. CIMETIDINE [Concomitant]
     Dates: start: 20110707, end: 20110707
  9. PANTOPRAZOLE [Concomitant]
     Indication: DYSPEPSIA
     Dates: start: 20110707
  10. MITIL [Concomitant]
     Indication: NAUSEA
     Dates: start: 20110707
  11. PHENERGAN [Concomitant]
     Dates: start: 20110823, end: 20110823

REACTIONS (5)
  - Anal fistula [Recovering/Resolving]
  - Anal abscess [Recovering/Resolving]
  - Diarrhoea [Recovered/Resolved]
  - Neutropenia [Recovered/Resolved]
  - Neutropenia [Recovered/Resolved]
